FAERS Safety Report 15458156 (Version 2)
Quarter: 2019Q1

REPORT INFORMATION
  Report Type: Spontaneous
  Country: US (occurrence: US)
  Receive Date: 20181003
  Receipt Date: 20190226
  Transmission Date: 20190417
  Serious: Yes (Life-Threatening, Other)
  Sender: FDA-Public Use
  Company Number: US-SUN PHARMACEUTICAL INDUSTRIES LTD-2018US-185323

PATIENT
  Age: 13 Year
  Sex: Male

DRUGS (8)
  1. METHYLPREDNISOLONE. [Concomitant]
     Active Substance: METHYLPREDNISOLONE
     Indication: PRODUCT USED FOR UNKNOWN INDICATION
     Dosage: 1 GRAM, DAILY
     Route: 042
  2. IMMUNE GLOBULIN NOS [Concomitant]
     Active Substance: IMMUNE GLOBULIN NOS
     Indication: PRODUCT USED FOR UNKNOWN INDICATION
     Dosage: UNK (80G)
     Route: 042
  3. SERTRALINE [Suspect]
     Active Substance: SERTRALINE HYDROCHLORIDE
     Dosage: 100 MILLIGRAM
     Route: 065
  4. OMEPRAZOLE. [Concomitant]
     Active Substance: OMEPRAZOLE
     Indication: GASTRIC DISORDER
     Route: 065
  5. SERTRALINE [Suspect]
     Active Substance: SERTRALINE HYDROCHLORIDE
     Indication: ATTENTION DEFICIT/HYPERACTIVITY DISORDER
     Dosage: 25 MILLIGRAM, DAILY
     Route: 065
  6. CYCLOSPORINE. [Concomitant]
     Active Substance: CYCLOSPORINE
     Indication: HAEMOPHAGOCYTIC LYMPHOHISTIOCYTOSIS
     Dosage: UNK, BID
     Route: 065
  7. PREDNISONE. [Concomitant]
     Active Substance: PREDNISONE
     Indication: PRODUCT USED FOR UNKNOWN INDICATION
     Dosage: UNK 60 MG ALTERNATING DAILY
     Route: 048
  8. SERTRALINE [Suspect]
     Active Substance: SERTRALINE HYDROCHLORIDE
     Indication: ADJUSTMENT DISORDER WITH DEPRESSED MOOD
     Dosage: 75 MILLIGRAM, DAILY
     Route: 065

REACTIONS (16)
  - Trismus [Recovering/Resolving]
  - Leukocytosis [Recovering/Resolving]
  - Cardiac arrest [Recovering/Resolving]
  - Condition aggravated [Recovering/Resolving]
  - Haematuria [Recovering/Resolving]
  - Tachycardia [Recovering/Resolving]
  - Tooth discolouration [Unknown]
  - Hypothermia [Recovering/Resolving]
  - Pulseless electrical activity [Recovering/Resolving]
  - Renal failure [Recovering/Resolving]
  - Hypertension [Recovering/Resolving]
  - Asthenia [Recovering/Resolving]
  - Respiratory arrest [Recovering/Resolving]
  - Rhabdomyolysis [Recovering/Resolving]
  - Hypertensive encephalopathy [Recovering/Resolving]
  - Respiratory distress [Recovering/Resolving]
